FAERS Safety Report 23414846 (Version 3)
Quarter: 2024Q1

REPORT INFORMATION
  Report Type: Other
  Country: US (occurrence: None)
  Receive Date: 20240118
  Receipt Date: 20240123
  Transmission Date: 20240410
  Serious: Yes (Other)
  Sender: FDA-Public Use
  Company Number: US-ROCHE-3491118

PATIENT
  Age: 68 Year
  Sex: Male

DRUGS (14)
  1. OCREVUS [Suspect]
     Active Substance: OCRELIZUMAB
     Indication: Multiple sclerosis
     Route: 042
  2. AMIODARONE [Concomitant]
     Active Substance: AMIODARONE
     Dosage: 200 MG TABLET
  3. AMLODIPINE [Concomitant]
     Active Substance: AMLODIPINE BESYLATE
     Dosage: 5 MG TABLET
  4. ELIQUIS [Concomitant]
     Active Substance: APIXABAN
     Dosage: 5 MG TABLET
  5. ATORVASTATIN [Concomitant]
     Active Substance: ATORVASTATIN
     Dosage: 40 MG TABLET
  6. BACLOFEN [Concomitant]
     Active Substance: BACLOFEN
     Dosage: 20 MG TABLET
  7. CYANOCOBALAMIN [Concomitant]
     Active Substance: CYANOCOBALAMIN
     Dosage: 1000 MCG TABLET
  8. CYCLOBENZAPRINE [Concomitant]
     Active Substance: CYCLOBENZAPRINE
     Dosage: 10 MG TABLET
  9. INSULIN DETEMIR [Concomitant]
     Active Substance: INSULIN DETEMIR
     Dosage: 100 UNIT/ML INJECTOR PEN
  10. IPRATROPIUM [Concomitant]
     Active Substance: IPRATROPIUM
     Dosage: 0.06 % SOLUTION
  11. LOSARTAN [Concomitant]
     Active Substance: LOSARTAN
     Dosage: 100 MG TABLET
  12. SILDENAFIL [Concomitant]
     Active Substance: SILDENAFIL
     Dosage: 100 MG TABLET
  13. TORSEMIDE [Concomitant]
     Active Substance: TORSEMIDE
     Dosage: 20 MG TABLET
  14. TRAMADOL [Concomitant]
     Active Substance: TRAMADOL\TRAMADOL HYDROCHLORIDE
     Dosage: TAKE 1 TABLET BY MOUTH EVERY 6 HOURS

REACTIONS (5)
  - Septic shock [Unknown]
  - Product prescribing error [Unknown]
  - Atrial fibrillation [Unknown]
  - Blood glucose increased [Unknown]
  - Type 2 diabetes mellitus [Unknown]
